FAERS Safety Report 17900340 (Version 2)
Quarter: 2020Q2

REPORT INFORMATION
  Report Type: Spontaneous
  Country: US (occurrence: US)
  Receive Date: 20200616
  Receipt Date: 20200617
  Transmission Date: 20200714
  Serious: No
  Sender: FDA-Public Use
  Company Number: US-PFIZER INC-2020232688

PATIENT
  Age: 61 Year
  Sex: Male
  Weight: 83.91 kg

DRUGS (3)
  1. MORPHINE [Concomitant]
     Active Substance: MORPHINE
     Indication: NEURALGIA
     Dosage: 30 MG, 2X/DAY
  2. CHANTIX [Suspect]
     Active Substance: VARENICLINE TARTRATE
     Indication: SMOKING CESSATION THERAPY
     Dosage: 5 MG, DAILY
     Dates: start: 20200610
  3. OXYCODONE [Concomitant]
     Active Substance: OXYCODONE
     Indication: PAIN
     Dosage: 150 MG, DAILY (30 MG SUDDEN RELEASE, ONE TABLET 5 TIMES A DAY)
     Route: 048

REACTIONS (2)
  - Vomiting [Recovering/Resolving]
  - Flatulence [Unknown]

NARRATIVE: CASE EVENT DATE: 20200613
